FAERS Safety Report 23038219 (Version 2)
Quarter: 2023Q4

REPORT INFORMATION
  Report Type: Report from Study
  Country: US (occurrence: None)
  Receive Date: 20231006
  Receipt Date: 20231024
  Transmission Date: 20240109
  Serious: Yes (Death, Hospitalization, Other)
  Sender: FDA-Public Use
  Company Number: 2023A225212

PATIENT
  Age: 29284 Day
  Sex: Female
  Weight: 59.9 kg

DRUGS (1)
  1. LYNPARZA [Suspect]
     Active Substance: OLAPARIB
     Indication: Ovarian cancer
     Route: 048
     Dates: start: 20220302, end: 20230724

REACTIONS (1)
  - Death [Fatal]

NARRATIVE: CASE EVENT DATE: 20230807
